FAERS Safety Report 8763860 (Version 2)
Quarter: 2012Q4

REPORT INFORMATION
  Report Type: 
  Country: GB (occurrence: GB)
  Receive Date: 20120831
  Receipt Date: 20120912
  Transmission Date: 20130627
  Serious: Yes (Death, Other)
  Sender: FDA-Public Use
  Company Number: PHFR2012GB004734

PATIENT
  Age: 62 Year
  Sex: Female

DRUGS (1)
  1. CLOZARIL [Suspect]
     Indication: SCHIZOPHRENIA
     Dates: start: 20120321

REACTIONS (5)
  - Death [Fatal]
  - Lung neoplasm malignant [Unknown]
  - Embolism [Unknown]
  - Abdominal distension [Unknown]
  - Vomiting [Unknown]
